FAERS Safety Report 4981620-2 (Version None)
Quarter: 2006Q2

REPORT INFORMATION
  Report Type: 
  Country: None (occurrence: None)
  Receive Date: 20060425
  Receipt Date: 20060413
  Transmission Date: 20061013
  Serious: Yes (Other)
  Sender: FDA-Public Use
  Company Number: PHBS2006JP05535

PATIENT

DRUGS (1)
  1. AREDIA [Suspect]
     Indication: METASTASES TO BONE
     Dosage: EVERY 3 WEEKS FOR 2 MONTHS
     Route: 065
     Dates: start: 20060201

REACTIONS (1)
  - HYPOAESTHESIA [None]
